FAERS Safety Report 20168806 (Version 1)
Quarter: 2021Q4

REPORT INFORMATION
  Report Type: Spontaneous
  Country: CN (occurrence: CN)
  Receive Date: 20211210
  Receipt Date: 20211210
  Transmission Date: 20220303
  Serious: Yes (Hospitalization, Other)
  Sender: FDA-Public Use
  Company Number: CN-SA-SAC20211208000706

PATIENT
  Age: 52 Year
  Sex: Male
  Weight: 53 kg

DRUGS (3)
  1. CAPECITABINE [Suspect]
     Active Substance: CAPECITABINE
     Indication: Neoplasm malignant
     Dosage: 2000 MG, QD
     Route: 041
     Dates: start: 20210810, end: 20210824
  2. ELOXATIN [Suspect]
     Active Substance: OXALIPLATIN
     Indication: Neoplasm malignant
     Dosage: 250 MG, QD
     Route: 041
     Dates: start: 20210810, end: 20210810
  3. TROPISETRON HYDROCHLORIDE [Suspect]
     Active Substance: TROPISETRON HYDROCHLORIDE
     Indication: Neoplasm malignant
     Dosage: 5 MG, QD
     Route: 041
     Dates: start: 20210810, end: 20210810

REACTIONS (1)
  - Myelosuppression [Recovering/Resolving]

NARRATIVE: CASE EVENT DATE: 20210827
